FAERS Safety Report 6944637-4 (Version None)
Quarter: 2010Q3

REPORT INFORMATION
  Report Type: 
  Country: None (occurrence: None)
  Receive Date: 20100827
  Receipt Date: 20100813
  Transmission Date: 20110219
  Serious: Yes (Death, Other)
  Sender: FDA-Public Use
  Company Number: IT-BAYER-201036419GPV

PATIENT
  Age: 14 Year
  Sex: Male

DRUGS (4)
  1. FLUDARABINE [Suspect]
     Indication: STEM CELL TRANSPLANT
  2. BUSULPHAN [Suspect]
     Indication: STEM CELL TRANSPLANT
  3. THIOTEPA [Suspect]
     Indication: STEM CELL TRANSPLANT
  4. CYCLOSPORINE [Concomitant]
     Indication: PROPHYLAXIS AGAINST GRAFT VERSUS HOST DISEASE

REACTIONS (2)
  - GRAFT VERSUS HOST DISEASE [None]
  - SEPSIS [None]
